FAERS Safety Report 5263455-9 (Version None)
Quarter: 2007Q1

REPORT INFORMATION
  Report Type: 
  Country: None (occurrence: None)
  Receive Date: 20070313
  Receipt Date: 20070302
  Transmission Date: 20070707
  Serious: Yes (Hospitalization, Other)
  Sender: FDA-Public Use
  Company Number: CH-JNJFOC-20070301046

PATIENT
  Age: 37 Year
  Sex: Male

DRUGS (11)
  1. IMODIUM [Suspect]
     Indication: GASTROENTERITIS
     Route: 048
     Dates: start: 20070127, end: 20070202
  2. IMODIUM [Suspect]
     Indication: DIARRHOEA
     Route: 048
     Dates: start: 20070127, end: 20070202
  3. ZOVIRAX [Suspect]
     Indication: ENCEPHALITIS
     Route: 042
     Dates: start: 20070203, end: 20070206
  4. ZOVIRAX [Suspect]
     Indication: MYELITIS
     Route: 042
     Dates: start: 20070203, end: 20070206
  5. ZOVIRAX [Suspect]
     Route: 042
     Dates: start: 20070203, end: 20070206
  6. AMOXICILLIN [Concomitant]
     Indication: ENCEPHALITIS
     Route: 042
     Dates: start: 20070203, end: 20070208
  7. AMOXICILLIN [Concomitant]
     Indication: MYELITIS
     Route: 042
     Dates: start: 20070203, end: 20070208
  8. AMOXICILLIN [Concomitant]
     Route: 042
     Dates: start: 20070203, end: 20070208
  9. ROCEPHIN [Concomitant]
     Indication: ENCEPHALITIS
     Route: 042
     Dates: start: 20070203, end: 20070212
  10. ROCEPHIN [Concomitant]
     Indication: MYELITIS
     Route: 042
     Dates: start: 20070203, end: 20070212
  11. ROCEPHIN [Concomitant]
     Route: 042
     Dates: start: 20070203, end: 20070212

REACTIONS (2)
  - RENAL FAILURE ACUTE [None]
  - URINARY RETENTION [None]
